FAERS Safety Report 22003028 (Version 2)
Quarter: 2023Q2

REPORT INFORMATION
  Report Type: Report from Study
  Country: US (occurrence: US)
  Receive Date: 20230217
  Receipt Date: 20230615
  Transmission Date: 20230722
  Serious: Yes (Hospitalization)
  Sender: FDA-Public Use
  Company Number: US-ETON PHARMACEUTICALS, INC-2022ETO000245

PATIENT

DRUGS (4)
  1. ALKINDI SPRINKLE [Suspect]
     Active Substance: HYDROCORTISONE
     Indication: Adrenoleukodystrophy
     Dosage: 2 MILLIGRAM, TID
     Route: 048
     Dates: start: 20220722
  2. ALKINDI SPRINKLE [Suspect]
     Active Substance: HYDROCORTISONE
     Dosage: 0.5 MILLIGRAM, TID
     Route: 048
     Dates: start: 20220722
  3. TYLENOL [Concomitant]
     Active Substance: ACETAMINOPHEN
     Indication: Product used for unknown indication
     Dosage: AS NEEDED
  4. IBUPROFEN [Concomitant]
     Active Substance: IBUPROFEN
     Indication: Product used for unknown indication
     Dosage: AS NEEDED

REACTIONS (6)
  - Hospitalisation [Unknown]
  - Seizure [Unknown]
  - COVID-19 [Unknown]
  - Dyspnoea [Unknown]
  - Skin lesion [Unknown]
  - Cough [Unknown]

NARRATIVE: CASE EVENT DATE: 20220101
